FAERS Safety Report 22362734 (Version 1)
Quarter: 2023Q2

REPORT INFORMATION
  Report Type: Spontaneous
  Country: US (occurrence: US)
  Receive Date: 20230524
  Receipt Date: 20230524
  Transmission Date: 20230722
  Serious: Yes (Other)
  Sender: FDA-Public Use
  Company Number: US-JNJFOC-20230539418

PATIENT
  Sex: Female
  Weight: 56.75 kg

DRUGS (1)
  1. XARELTO [Suspect]
     Active Substance: RIVAROXABAN
     Indication: Product used for unknown indication
     Route: 048

REACTIONS (17)
  - Hemiparesis [Unknown]
  - Back injury [Unknown]
  - Intentional product misuse [Unknown]
  - Pain in extremity [Unknown]
  - Faeces discoloured [Unknown]
  - Chromaturia [Unknown]
  - Palpitations [Unknown]
  - Skin discolouration [Unknown]
  - Swelling [Not Recovered/Not Resolved]
  - Headache [Unknown]
  - Heavy menstrual bleeding [Not Recovered/Not Resolved]
  - Urinary incontinence [Unknown]
  - Anal incontinence [Unknown]
  - Visual impairment [Unknown]
  - Balance disorder [Unknown]
  - Aphasia [Unknown]
  - Hypoaesthesia [Unknown]
